FAERS Safety Report 14987125 (Version 1)
Quarter: 2018Q2

REPORT INFORMATION
  Report Type: Report from Study
  Country: US (occurrence: US)
  Receive Date: 20180608
  Receipt Date: 20180608
  Transmission Date: 20180711
  Serious: Yes (Other)
  Sender: FDA-Public Use
  Company Number: US-TEVA-2018-US-899547

PATIENT
  Age: 28 Year
  Sex: Female

DRUGS (2)
  1. COPAXONE [Suspect]
     Active Substance: GLATIRAMER ACETATE
     Indication: MULTIPLE SCLEROSIS
     Route: 058
     Dates: start: 20180509
  2. COPAXONE [Suspect]
     Active Substance: GLATIRAMER ACETATE
     Route: 058
     Dates: start: 20180410, end: 20180523

REACTIONS (9)
  - Throat tightness [Unknown]
  - Swollen tongue [Unknown]
  - Hypersensitivity [Unknown]
  - Drug ineffective [Unknown]
  - Gastrointestinal inflammation [Unknown]
  - Pruritus generalised [Unknown]
  - Swelling face [Unknown]
  - Rash generalised [Unknown]
  - Skin burning sensation [Unknown]

NARRATIVE: CASE EVENT DATE: 20180523
